FAERS Safety Report 21237500 (Version 3)
Quarter: 2024Q1

REPORT INFORMATION
  Report Type: Spontaneous
  Country: US (occurrence: US)
  Receive Date: 20220822
  Receipt Date: 20240227
  Transmission Date: 20240410
  Serious: Yes (Other)
  Sender: FDA-Public Use
  Company Number: US-CIPLA LTD.-2022US04971

PATIENT

DRUGS (4)
  1. ZONISAMIDE [Suspect]
     Active Substance: ZONISAMIDE
     Indication: Seizure
     Dosage: 4 DOSAGE FORM, QD
     Route: 065
     Dates: start: 1999
  2. ZONISAMIDE [Suspect]
     Active Substance: ZONISAMIDE
     Dosage: 400 MILLIGRAM, QD
     Route: 065
     Dates: start: 20220804
  3. ZONISAMIDE [Suspect]
     Active Substance: ZONISAMIDE
     Dosage: UNK
     Route: 065
     Dates: start: 20220807
  4. MOTRIN [Concomitant]
     Active Substance: IBUPROFEN
     Indication: Product used for unknown indication
     Dosage: UNK, PRN (WHEN NEEDED)
     Route: 065

REACTIONS (8)
  - Amnesia [Recovered/Resolved]
  - Head discomfort [Recovered/Resolved]
  - Thinking abnormal [Recovered/Resolved]
  - Feeling abnormal [Recovered/Resolved]
  - Product appearance confusion [Unknown]
  - Wrong product administered [Unknown]
  - Gait disturbance [Recovered/Resolved]
  - Dizziness [Recovered/Resolved]

NARRATIVE: CASE EVENT DATE: 20220804
